FAERS Safety Report 11432229 (Version 1)
Quarter: 2015Q3

REPORT INFORMATION
  Report Type: Spontaneous
  Country: US (occurrence: US)
  Receive Date: 20150828
  Receipt Date: 20150828
  Transmission Date: 20151125
  Serious: Yes (Death, Other)
  Sender: FDA-Public Use
  Company Number: US-BAYER-2015-404699

PATIENT
  Age: 65 Year
  Sex: Male

DRUGS (1)
  1. BAYER ADVANCED ASPIRIN EXTRA STRENGTH [Suspect]
     Active Substance: ASPIRIN
     Indication: ARTHRITIS
     Dosage: 2 DF, PRN
     Route: 048
     Dates: start: 2012

REACTIONS (4)
  - Pharyngeal haemorrhage [Recovered/Resolved]
  - Throat irritation [Recovered/Resolved]
  - Myocardial infarction [Fatal]
  - Feeding disorder [None]

NARRATIVE: CASE EVENT DATE: 2012
